FAERS Safety Report 10873638 (Version 4)
Quarter: 2015Q2

REPORT INFORMATION
  Report Type: Spontaneous
  Country: US (occurrence: US)
  Receive Date: 20150227
  Receipt Date: 20150629
  Transmission Date: 20150821
  Serious: Yes (Hospitalization, Other)
  Sender: FDA-Public Use
  Company Number: US-MERCK-1502USA011787

PATIENT
  Sex: Female
  Weight: 117.91 kg

DRUGS (1)
  1. JANUVIA [Suspect]
     Active Substance: SITAGLIPTIN PHOSPHATE
     Indication: TYPE 2 DIABETES MELLITUS
     Dosage: 100 MG, QD
     Route: 048
     Dates: start: 20100408, end: 201201

REACTIONS (30)
  - Anxiety [Unknown]
  - Fall [Unknown]
  - Haemangioma of liver [Unknown]
  - Accessory spleen [Unknown]
  - Gingivitis [Unknown]
  - Metrorrhagia [Unknown]
  - Tumour excision [Unknown]
  - Atelectasis [Unknown]
  - Periodontal disease [Unknown]
  - Pancreatic pseudocyst [Recovered/Resolved]
  - Hepatic steatosis [Unknown]
  - Diverticulum intestinal [Unknown]
  - Stress [Unknown]
  - Cyst drainage [Unknown]
  - Pancreatic carcinoma [Unknown]
  - Umbilical hernia [Unknown]
  - Spinal osteoarthritis [Unknown]
  - Peripancreatic fluid collection [Recovered/Resolved]
  - Cholecystectomy [Unknown]
  - Hepatomegaly [Unknown]
  - Hot flush [Unknown]
  - Mental disorder [Unknown]
  - Pancreatic leak [Unknown]
  - Renal cyst [Unknown]
  - Dysmorphism [Unknown]
  - Haematocrit abnormal [Recovering/Resolving]
  - Pancreatic neuroendocrine tumour [Unknown]
  - Gastrointestinal surgery [Unknown]
  - Peripancreatic fluid collection [Unknown]
  - Joint effusion [Unknown]

NARRATIVE: CASE EVENT DATE: 201310
